FAERS Safety Report 19658186 (Version 3)
Quarter: 2021Q3

REPORT INFORMATION
  Report Type: Spontaneous
  Country: CZ (occurrence: CZ)
  Receive Date: 20210805
  Receipt Date: 20210902
  Transmission Date: 20211014
  Serious: Yes (Hospitalization)
  Sender: FDA-Public Use
  Company Number: CZ-AUROBINDO-AUR-APL-2021-033044

PATIENT
  Age: 19 Year
  Sex: Female
  Weight: 42 kg

DRUGS (7)
  1. SERTRALINE [Suspect]
     Active Substance: SERTRALINE HYDROCHLORIDE
     Indication: OBSESSIVE-COMPULSIVE DISORDER
     Dosage: 100 MILLIGRAM, DAILY
     Route: 065
  2. OLANZAPINE. [Suspect]
     Active Substance: OLANZAPINE
     Indication: OBSESSIVE-COMPULSIVE DISORDER
  3. OLANZAPINE. [Suspect]
     Active Substance: OLANZAPINE
     Indication: PSYCHOTHERAPY
     Dosage: 10 MILLIGRAM, ONCE A DAY (SINGLE EVENING DOSE)
     Route: 065
  4. OLANZAPINE. [Suspect]
     Active Substance: OLANZAPINE
     Indication: PSYCHOTIC DISORDER
     Dosage: UNK (DOSE INCARESED)
     Route: 065
  5. CLOZAPINE. [Suspect]
     Active Substance: CLOZAPINE
     Indication: MENTAL DISORDER
     Dosage: 100 MILLIGRAM, DAILY
     Route: 065
  6. DIAZEPAM. [Concomitant]
     Active Substance: DIAZEPAM
     Indication: PRODUCT USED FOR UNKNOWN INDICATION
     Dosage: 3 UNK
     Route: 065
  7. VALPROIC ACID. [Concomitant]
     Active Substance: VALPROIC ACID
     Indication: ELECTROENCEPHALOGRAM ABNORMAL
     Dosage: 600 MILLIGRAM, DAILY
     Route: 065

REACTIONS (6)
  - Concomitant disease aggravated [Unknown]
  - Catatonia [Recovering/Resolving]
  - Infection [Unknown]
  - Obsessive-compulsive disorder [Recovered/Resolved]
  - Drug ineffective [Unknown]
  - Treatment failure [Unknown]
